FAERS Safety Report 9238317 (Version 2)
Quarter: 2013Q2

REPORT INFORMATION
  Report Type: Spontaneous
  Country: AU (occurrence: AU)
  Receive Date: 20130418
  Receipt Date: 20130629
  Transmission Date: 20140414
  Serious: Yes (Hospitalization, Other)
  Sender: FDA-Public Use
  Company Number: AU-009507513-1304AUS007346

PATIENT
  Age: 60 Year
  Sex: Male

DRUGS (3)
  1. RIBAVIRIN [Suspect]
     Dosage: 800 MG, QD
     Dates: start: 20121010
  2. TELAPREVIR [Suspect]
     Dosage: 750 MG, TID
     Route: 048
     Dates: start: 20121010
  3. PEGASYS [Suspect]
     Dosage: 180 MICROGRAM, QW
     Route: 048
     Dates: start: 20121010

REACTIONS (4)
  - Pneumococcal bacteraemia [Unknown]
  - Circulatory collapse [Recovering/Resolving]
  - Renal failure acute [Recovering/Resolving]
  - Hemiparesis [Recovering/Resolving]
